FAERS Safety Report 23991177 (Version 1)
Quarter: 2024Q2

REPORT INFORMATION
  Report Type: Spontaneous
  Country: PL (occurrence: None)
  Receive Date: 20240619
  Receipt Date: 20240619
  Transmission Date: 20240716
  Serious: Yes (Other)
  Sender: FDA-Public Use
  Company Number: 2024A140065

PATIENT
  Age: 72 Year
  Sex: Male
  Weight: 80 kg

DRUGS (29)
  1. DAPAGLIFLOZIN [Suspect]
     Active Substance: DAPAGLIFLOZIN
     Indication: Type 2 diabetes mellitus
     Route: 048
  2. FENOFIBRATE [Concomitant]
     Active Substance: FENOFIBRATE
     Dosage: BASELINE
  3. FENOFIBRATE [Concomitant]
     Active Substance: FENOFIBRATE
     Dosage: 4 WEEKS
  4. FENOFIBRATE [Concomitant]
     Active Substance: FENOFIBRATE
     Dosage: 12 WEEKS
  5. FENOFIBRATE [Concomitant]
     Active Substance: FENOFIBRATE
     Dosage: 17 WEEKS
  6. GLICLAZIDE [Concomitant]
     Active Substance: GLICLAZIDE
     Dosage: BASELINE
  7. GLICLAZIDE [Concomitant]
     Active Substance: GLICLAZIDE
     Dosage: 17 WEEKS
  8. LINAGLIPTIN [Concomitant]
     Active Substance: LINAGLIPTIN
     Indication: Type 2 diabetes mellitus
     Dosage: BASELINE
  9. LINAGLIPTIN [Concomitant]
     Active Substance: LINAGLIPTIN
     Indication: Type 2 diabetes mellitus
     Dosage: 17 WEEK
  10. FINASTERIDE [Concomitant]
     Active Substance: FINASTERIDE
     Indication: Type 2 diabetes mellitus
     Dosage: BASELINE
  11. FINASTERIDE [Concomitant]
     Active Substance: FINASTERIDE
     Indication: Type 2 diabetes mellitus
     Dosage: 4 WEEKS
  12. FINASTERIDE [Concomitant]
     Active Substance: FINASTERIDE
     Indication: Type 2 diabetes mellitus
     Dosage: 12 WEEKS
  13. FINASTERIDE [Concomitant]
     Active Substance: FINASTERIDE
     Indication: Type 2 diabetes mellitus
     Dosage: 17 WEEKS
  14. VITAMIN D [Concomitant]
     Active Substance: VITAMIN D NOS
     Indication: Type 2 diabetes mellitus
     Dosage: 2000 U BASELINE
  15. VITAMIN D [Concomitant]
     Active Substance: VITAMIN D NOS
     Indication: Type 2 diabetes mellitus
     Dosage: 2000 U 4 WEEKS
  16. VITAMIN D [Concomitant]
     Active Substance: VITAMIN D NOS
     Indication: Type 2 diabetes mellitus
     Dosage: 2000 U 12 WEEKS
  17. VITAMIN D [Concomitant]
     Active Substance: VITAMIN D NOS
     Indication: Type 2 diabetes mellitus
     Dosage: 2000 U 17 WEEKS
  18. ASPIRIN [Concomitant]
     Active Substance: ASPIRIN
     Indication: Type 2 diabetes mellitus
     Dosage: BASELINE
  19. ASPIRIN [Concomitant]
     Active Substance: ASPIRIN
     Indication: Type 2 diabetes mellitus
     Dosage: 4 WEEKS
  20. ASPIRIN [Concomitant]
     Active Substance: ASPIRIN
     Indication: Type 2 diabetes mellitus
     Dosage: 12WEEKS
  21. ASPIRIN [Concomitant]
     Active Substance: ASPIRIN
     Indication: Type 2 diabetes mellitus
     Dosage: 17 WEEKS
  22. PANTOPRAZOLE [Concomitant]
     Active Substance: PANTOPRAZOLE
     Indication: Type 2 diabetes mellitus
     Dosage: BASELINE
  23. PANTOPRAZOLE [Concomitant]
     Active Substance: PANTOPRAZOLE
     Indication: Type 2 diabetes mellitus
     Dosage: 4 WEEKS
  24. PANTOPRAZOLE [Concomitant]
     Active Substance: PANTOPRAZOLE
     Indication: Type 2 diabetes mellitus
     Dosage: 12 WEEKS
  25. PANTOPRAZOLE [Concomitant]
     Active Substance: PANTOPRAZOLE
     Indication: Type 2 diabetes mellitus
     Dosage: 17 WEEKS
  26. LEVOTHYROXINE [Concomitant]
     Active Substance: LEVOTHYROXINE\LEVOTHYROXINE SODIUM
     Indication: Type 2 diabetes mellitus
     Dosage: BASELINE
  27. LEVOTHYROXINE [Concomitant]
     Active Substance: LEVOTHYROXINE\LEVOTHYROXINE SODIUM
     Indication: Type 2 diabetes mellitus
     Dosage: 4 WEEKS
  28. LEVOTHYROXINE [Concomitant]
     Active Substance: LEVOTHYROXINE\LEVOTHYROXINE SODIUM
     Indication: Type 2 diabetes mellitus
     Dosage: 12 WEEKS
  29. LEVOTHYROXINE [Concomitant]
     Active Substance: LEVOTHYROXINE\LEVOTHYROXINE SODIUM
     Indication: Type 2 diabetes mellitus
     Dosage: 17 WEEKS

REACTIONS (2)
  - Sarcopenia [Recovered/Resolved with Sequelae]
  - Weight decreased [Recovered/Resolved with Sequelae]
